FAERS Safety Report 6095437-1 (Version None)
Quarter: 2009Q1

REPORT INFORMATION
  Report Type: 
  Country: None (occurrence: None)
  Receive Date: 20090227
  Receipt Date: 20080822
  Transmission Date: 20090719
  Serious: Yes (Other)
  Sender: FDA-Public Use
  Company Number: A0718679A

PATIENT
  Age: 12 Year
  Sex: Male
  Weight: 60.5 kg

DRUGS (2)
  1. LAMICTAL [Suspect]
     Dosage: 100MG TWICE PER DAY
     Route: 048
     Dates: start: 20071001
  2. ZARONTIN [Concomitant]
     Dosage: 750MG PER DAY

REACTIONS (11)
  - ASTHENIA [None]
  - CHEST PAIN [None]
  - CONVULSION [None]
  - DISTURBANCE IN ATTENTION [None]
  - MALAISE [None]
  - MUSCLE FATIGUE [None]
  - MUSCULOSKELETAL DISCOMFORT [None]
  - MUSCULOSKELETAL PAIN [None]
  - MYALGIA [None]
  - MYOSITIS [None]
  - NAUSEA [None]
